FAERS Safety Report 5567459-8 (Version None)
Quarter: 2007Q4

REPORT INFORMATION
  Report Type: 
  Country: None (occurrence: None)
  Receive Date: 20071214
  Receipt Date: 20071206
  Transmission Date: 20080405
  Serious: Yes (Death, Other)
  Sender: FDA-Public Use
  Company Number: 430014N07JPN

PATIENT
  Age: 77 Year
  Sex: Male

DRUGS (6)
  1. NOVANTRONE [Suspect]
     Indication: ACUTE MYELOID LEUKAEMIA
     Dosage: INTRAVENOUS
     Route: 042
     Dates: start: 20070623, end: 20070625
  2. MYLOTARG [Suspect]
     Indication: ACUTE MYELOID LEUKAEMIA
     Dosage: 9 MG/M2, 1 IN 1 DAYS, INTRAVENOUS; 9 MG/M2, 1 IN 1 DAYS, INTRAVENOUS; 9 MG/M2, 1 IN 1 DAYS, INTRAVEN
     Route: 042
     Dates: start: 20070324, end: 20070324
  3. MYLOTARG [Suspect]
     Indication: ACUTE MYELOID LEUKAEMIA
     Dosage: 9 MG/M2, 1 IN 1 DAYS, INTRAVENOUS; 9 MG/M2, 1 IN 1 DAYS, INTRAVENOUS; 9 MG/M2, 1 IN 1 DAYS, INTRAVEN
     Route: 042
     Dates: start: 20070628, end: 20070628
  4. LEVOFLOXACIN [Concomitant]
  5. ITRACONAZOLE [Concomitant]
  6. CEFEPIME HYDROCHLORIDE [Concomitant]

REACTIONS (6)
  - BRONCHOPULMONARY ASPERGILLOSIS [None]
  - FEBRILE NEUTROPENIA [None]
  - HYPERBILIRUBINAEMIA [None]
  - LIVER DISORDER [None]
  - PNEUMOCYSTIS JIROVECI PNEUMONIA [None]
  - WEIGHT INCREASED [None]
